FAERS Safety Report 8860661 (Version 2)
Quarter: 2013Q1

REPORT INFORMATION
  Report Type: Spontaneous
  Country: US (occurrence: US)
  Receive Date: 20121025
  Receipt Date: 20130221
  Transmission Date: 20140127
  Serious: No
  Sender: FDA-Public Use
  Company Number: US-ASTRAZENECA-2012SE16518

PATIENT
  Age: 59 Year
  Sex: Male

DRUGS (4)
  1. LISINOPRIL [Suspect]
     Route: 048
  2. CRESTOR [Suspect]
     Indication: HYPERCHOLESTEROLAEMIA
     Dosage: 10 MG ONE TABLET AT BED TIME AS NEEDED
     Route: 048
  3. CRESTOR [Suspect]
     Indication: TYPE 2 DIABETES MELLITUS
     Dosage: 10 MG ONE TABLET AT BED TIME AS NEEDED
     Route: 048
  4. CRESTOR [Suspect]
     Indication: HYPERTRIGLYCERIDAEMIA
     Dosage: 10 MG ONE TABLET AT BED TIME AS NEEDED
     Route: 048

REACTIONS (2)
  - Cough [Unknown]
  - Off label use [Unknown]
